FAERS Safety Report 7364221-0 (Version None)
Quarter: 2011Q1

REPORT INFORMATION
  Report Type: 
  Country: None (occurrence: None)
  Receive Date: 20110321
  Receipt Date: 20110311
  Transmission Date: 20110831
  Serious: Yes (Hospitalization)
  Sender: FDA-Public Use
  Company Number: A0861324A

PATIENT
  Age: 66 Year
  Sex: Female
  Weight: 97.7 kg

DRUGS (1)
  1. AVANDIA [Suspect]
     Dosage: 8MG PER DAY
     Route: 048
     Dates: start: 20030827, end: 20070101

REACTIONS (1)
  - MYOCARDIAL INFARCTION [None]
